FAERS Safety Report 10260362 (Version 1)
Quarter: 2014Q2

REPORT INFORMATION
  Report Type: Spontaneous
  Country: US (occurrence: US)
  Receive Date: 20140625
  Receipt Date: 20140625
  Transmission Date: 20141212
  Serious: Yes (Other)
  Sender: FDA-Public Use
  Company Number: US-SA-2014SA076998

PATIENT
  Age: 62 Year
  Sex: Male
  Weight: 68 kg

DRUGS (9)
  1. AUBAGIO [Suspect]
     Indication: MULTIPLE SCLEROSIS
     Route: 048
     Dates: start: 20131231, end: 20140422
  2. ATORVASTATIN [Concomitant]
  3. VITAMIN B12 [Concomitant]
  4. FLUOXETINE [Concomitant]
  5. METHYLPHENIDATE [Concomitant]
  6. VESICARE [Concomitant]
  7. AMLODIPINE [Concomitant]
  8. CARVEDILOL [Concomitant]
  9. CRANBERRY EXTRACT [Concomitant]

REACTIONS (1)
  - Diarrhoea [Recovered/Resolved]
